FAERS Safety Report 10085948 (Version 2)
Quarter: 2014Q2

REPORT INFORMATION
  Report Type: Report from Study
  Country: DE (occurrence: DE)
  Receive Date: 20140418
  Receipt Date: 20140418
  Transmission Date: 20141212
  Serious: Yes (Hospitalization)
  Sender: FDA-Public Use
  Company Number: DE-SA-2014SA016034

PATIENT
  Age: 34 Year
  Sex: Female

DRUGS (2)
  1. AUBAGIO [Suspect]
     Indication: MULTIPLE SCLEROSIS
     Route: 048
     Dates: start: 201312, end: 201404
  2. AUBAGIO [Suspect]
     Indication: MULTIPLE SCLEROSIS
     Route: 048
     Dates: start: 201404

REACTIONS (4)
  - Investigation [Unknown]
  - Weight increased [Not Recovered/Not Resolved]
  - Multiple sclerosis relapse [Unknown]
  - Nasopharyngitis [Unknown]
